FAERS Safety Report 12375241 (Version 1)
Quarter: 2016Q2

REPORT INFORMATION
  Report Type: Report from Study
  Country: US (occurrence: US)
  Receive Date: 20160517
  Receipt Date: 20160517
  Transmission Date: 20160815
  Serious: Yes (Death, Life-Threatening, Hospitalization)
  Sender: FDA-Public Use
  Company Number: PHHO2014US019044

PATIENT
  Age: 61 Year
  Sex: Female

DRUGS (6)
  1. METHOTREXATE [Suspect]
     Active Substance: METHOTREXATE
     Indication: MANTLE CELL LYMPHOMA
     Dosage: 1610 MG, CYCLIC (ONE DOSE ON DAY 3, CYCLES 2,4,6)
     Route: 065
     Dates: start: 20140530
  2. VINCRISTINE [Suspect]
     Active Substance: VINCRISTINE
     Indication: MANTLE CELL LYMPHOMA
     Dosage: 2 MG, CYCLIC,ONCE ON ON DAYS 6 AND 13, CYCLES 1, 3, 5)
     Route: 065
     Dates: start: 20140512
  3. DOXORUBICIN [Suspect]
     Active Substance: DOXORUBICIN
     Indication: MANTLE CELL LYMPHOMA
     Dosage: 27 MG, CYCLIC (DAILY X 3 DAYS, BEGINNING ON DAY 6, CYCLES, 1,3 5)
     Route: 065
     Dates: start: 20140512
  4. CYTARABINE. [Suspect]
     Active Substance: CYTARABINE
     Indication: MANTLE CELL LYMPHOMA
     Dosage: 1610 MG, CYCLIC,EVERY 12 HOURS X4 DOSES, CYCLES 2,4 AND 6
     Route: 065
     Dates: start: 20140531
  5. OFATUMUMAB [Suspect]
     Active Substance: OFATUMUMAB
     Indication: MANTLE CELL LYMPHOMA
     Dosage: 1000 MG, CYCLIC
     Route: 042
     Dates: start: 20140507
  6. CYCLOPHOSPHAMIDE. [Suspect]
     Active Substance: CYCLOPHOSPHAMIDE
     Indication: MANTLE CELL LYMPHOMA
     Dosage: 489 MG, CYCLIC, EVERY 12 HOURS X6 DOSES, BEGINNING ON DAY 3, CYCLES 1,3,5
     Route: 065
     Dates: start: 20140509

REACTIONS (2)
  - Sepsis [Fatal]
  - Diverticular perforation [Recovered/Resolved]

NARRATIVE: CASE EVENT DATE: 20140601
